FAERS Safety Report 6794503-2 (Version None)
Quarter: 2010Q2

REPORT INFORMATION
  Report Type: 
  Country: None (occurrence: None)
  Receive Date: 20100625
  Receipt Date: 20100614
  Transmission Date: 20101027
  Serious: Yes (Other)
  Sender: FDA-Public Use
  Company Number: CA-PFIZER INC-2010074770

PATIENT
  Age: 30 Year
  Sex: Male

DRUGS (5)
  1. ZELDOX [Suspect]
     Indication: SCHIZOPHRENIA
     Dosage: 80 MG, 2X/DAY
  2. ZELDOX [Suspect]
     Dosage: 40 MG MORNING, 120 MG EVENING
  3. ZELDOX [Suspect]
     Dosage: 80 MG, 2X/DAY
  4. ZELDOX [Suspect]
     Dosage: 160 MG, 1X/DAY, EVENING
  5. WELLBUTRIN [Concomitant]
     Dosage: 300 MG, 1X/DAY

REACTIONS (4)
  - DIZZINESS [None]
  - HALLUCINATION [None]
  - SOMNOLENCE [None]
  - WITHDRAWAL SYNDROME [None]
